FAERS Safety Report 6844761-0 (Version None)
Quarter: 2010Q3

REPORT INFORMATION
  Report Type: 
  Country: None (occurrence: None)
  Receive Date: 20100715
  Receipt Date: 20100713
  Transmission Date: 20110219
  Serious: Yes (Death)
  Sender: FDA-Public Use
  Company Number: RO-BRISTOL-MYERS SQUIBB COMPANY-15191091

PATIENT

DRUGS (1)
  1. SPRYCEL [Suspect]
     Dates: start: 20080101

REACTIONS (1)
  - DEATH [None]
